FAERS Safety Report 6737555-8 (Version None)
Quarter: 2010Q2

REPORT INFORMATION
  Report Type: 
  Country: None (occurrence: None)
  Receive Date: 20100521
  Receipt Date: 20100521
  Transmission Date: 20101027
  Serious: No
  Sender: FDA-Public Use
  Company Number: None

PATIENT
  Sex: Male
  Weight: 102.5129 kg

DRUGS (2)
  1. LISINOPRIL [Suspect]
     Indication: HYPERTENSION
     Dosage: 40MG QD PO
     Route: 048
     Dates: start: 20080318
  2. LISINOPRIL [Suspect]
     Indication: HYPERTENSION
     Dosage: 40MG QD PO
     Route: 048
     Dates: start: 20100330

REACTIONS (2)
  - BLOOD PRESSURE INADEQUATELY CONTROLLED [None]
  - COUGH [None]
